FAERS Safety Report 18928998 (Version 1)
Quarter: 2021Q1

REPORT INFORMATION
  Report Type: Spontaneous
  Country: RU (occurrence: RU)
  Receive Date: 20210223
  Receipt Date: 20210223
  Transmission Date: 20210420
  Serious: Yes (Life-Threatening)
  Sender: FDA-Public Use
  Company Number: RU-ASTRAZENECA-2021A071489

PATIENT
  Age: 12526 Day
  Sex: Female
  Weight: 66 kg

DRUGS (1)
  1. SYMBICORT [Suspect]
     Active Substance: BUDESONIDE\FORMOTEROL FUMARATE DIHYDRATE
     Indication: ASTHMA
     Dosage: 320ML/KG TWO TIMES A DAY
     Route: 055
     Dates: start: 20210118, end: 20210207

REACTIONS (4)
  - Drug ineffective [Unknown]
  - Asthma [Recovered/Resolved]
  - Product physical issue [Unknown]
  - Product taste abnormal [Unknown]

NARRATIVE: CASE EVENT DATE: 20200125
